FAERS Safety Report 24569846 (Version 1)
Quarter: 2024Q4

REPORT INFORMATION
  Report Type: Spontaneous
  Country: US (occurrence: None)
  Receive Date: 20241031
  Receipt Date: 20241031
  Transmission Date: 20250115
  Serious: Yes (Other)
  Sender: Public
  Company Number: None

PATIENT
  Age: 58 Year
  Sex: Female
  Weight: 97.65 kg

DRUGS (10)
  1. MOUNJARO [Suspect]
     Active Substance: TIRZEPATIDE
     Indication: Type 2 diabetes mellitus
     Dosage: OTHER FREQUENCY : WEEKLY;?
     Route: 058
  2. DULOXETINE [Concomitant]
     Active Substance: DULOXETINE
  3. CELEBREX [Concomitant]
     Active Substance: CELECOXIB
  4. VITAMIN D [Concomitant]
     Active Substance: VITAMIN D NOS
  5. B12 [Concomitant]
  6. CALCIUM [Concomitant]
     Active Substance: CALCIUM
  7. biotin low dose [Concomitant]
  8. MAGNESIUM [Concomitant]
     Active Substance: MAGNESIUM
  9. VITAMINS [Concomitant]
     Active Substance: VITAMINS
  10. PROBIOTICS NOS [Concomitant]
     Active Substance: PROBIOTICS NOS

REACTIONS (9)
  - Myalgia [None]
  - Muscular weakness [None]
  - Gait inability [None]
  - Loss of personal independence in daily activities [None]
  - Movement disorder [None]
  - Therapy cessation [None]
  - Osteoarthritis [None]
  - Autoimmune disorder [None]
  - Dehydration [None]

NARRATIVE: CASE EVENT DATE: 20240901
